FAERS Safety Report 23453891 (Version 1)
Quarter: 2024Q1

REPORT INFORMATION
  Report Type: Spontaneous
  Country: IN (occurrence: IN)
  Receive Date: 20240129
  Receipt Date: 20240129
  Transmission Date: 20240410
  Serious: Yes (Hospitalization)
  Sender: FDA-Public Use
  Company Number: IN-STRIDES ARCOLAB LIMITED-2024SP001072

PATIENT
  Age: 48 Year
  Sex: Male

DRUGS (1)
  1. METHOTREXATE [Suspect]
     Active Substance: METHOTREXATE
     Indication: Eczema
     Dosage: 10 MILLIGRAM (PRESCRIBED WITH 5MG. HOWEVER, IGNORANTLY TOOK 10MG)
     Route: 065

REACTIONS (4)
  - Incorrect dose administered [Unknown]
  - Wrong dose [Unknown]
  - Mouth ulceration [Unknown]
  - Off label use [Unknown]

NARRATIVE: CASE EVENT DATE: 20211201
